FAERS Safety Report 16776205 (Version 1)
Quarter: 2019Q3

REPORT INFORMATION
  Report Type: Spontaneous
  Country: US (occurrence: US)
  Receive Date: 20190905
  Receipt Date: 20190905
  Transmission Date: 20191005
  Serious: No
  Sender: FDA-Public Use
  Company Number: US-CELGENEUS-USA-20190809483

PATIENT
  Sex: Female

DRUGS (2)
  1. OTEZLA [Suspect]
     Active Substance: APREMILAST
     Indication: OFF LABEL USE
     Dosage: 60 MILLIGRAM
     Route: 048
     Dates: start: 2019, end: 2019
  2. OTEZLA [Suspect]
     Active Substance: APREMILAST
     Indication: JUVENILE IDIOPATHIC ARTHRITIS
     Dosage: TITRATION PACK: 10/20/30 MILLIGRAM
     Route: 048
     Dates: start: 20190724

REACTIONS (1)
  - Nonspecific reaction [Unknown]

NARRATIVE: CASE EVENT DATE: 2019
